FAERS Safety Report 9965855 (Version 1)
Quarter: 2014Q1

REPORT INFORMATION
  Report Type: Report from Study
  Country: US (occurrence: US)
  Receive Date: 20140305
  Receipt Date: 20140305
  Transmission Date: 20141002
  Serious: No
  Sender: FDA-Public Use
  Company Number: US-ABBVIE-13P-163-1123980-00

PATIENT
  Age: 63 Year
  Sex: Female

DRUGS (9)
  1. HUMIRA [Suspect]
     Indication: CROHN^S DISEASE
     Dates: start: 20130705
  2. HUMIRA [Suspect]
     Indication: RHEUMATOID ARTHRITIS
  3. HYDROCODONE [Concomitant]
     Indication: PAIN
     Dosage: 5/500 1 IN AM AND 1 IN PM
  4. ONE A DAY ADVANCE ADULTS 50+ [Concomitant]
     Indication: PRODUCT USED FOR UNKNOWN INDICATION
     Dosage: DAILY
  5. ESTROGENS CONJUGATED [Concomitant]
     Indication: HYSTERECTOMY
     Dosage: 0.625 MG DAILY
  6. SIMVASTATIN [Concomitant]
     Indication: BLOOD CHOLESTEROL INCREASED
     Dosage: AT NIGHT
  7. CITALOPRAM [Concomitant]
     Indication: DEPRESSION
  8. FUROSEMIDE [Concomitant]
     Indication: FLUID RETENTION
  9. B COMPLEX [Concomitant]
     Indication: CROHN^S DISEASE
     Dosage: DAILY
     Route: 060

REACTIONS (2)
  - Injection site pain [Recovered/Resolved]
  - Tooth infection [Recovering/Resolving]
